FAERS Safety Report 23022208 (Version 3)
Quarter: 2024Q1

REPORT INFORMATION
  Report Type: Spontaneous
  Country: US (occurrence: US)
  Receive Date: 20231003
  Receipt Date: 20240216
  Transmission Date: 20240410
  Serious: Yes (Hospitalization)
  Sender: FDA-Public Use
  Company Number: US-JNJFOC-20230953675

PATIENT
  Sex: Female
  Weight: 59.02 kg

DRUGS (2)
  1. RYBREVANT [Suspect]
     Active Substance: AMIVANTAMAB-VMJW
     Indication: Product used for unknown indication
     Route: 065
  2. PREVACID [Concomitant]
     Active Substance: LANSOPRAZOLE
     Indication: Gastrooesophageal reflux disease

REACTIONS (15)
  - Hospitalisation [Unknown]
  - Brain fog [Unknown]
  - Back pain [Unknown]
  - Nail infection [Not Recovered/Not Resolved]
  - Dry skin [Unknown]
  - Swelling [Unknown]
  - Fatigue [Unknown]
  - Blood albumin decreased [Unknown]
  - Pain in extremity [Not Recovered/Not Resolved]
  - Nausea [Unknown]
  - Decreased appetite [Unknown]
  - Thirst decreased [Unknown]
  - Abdominal distension [Unknown]
  - Stomatitis [Unknown]
  - Joint swelling [Unknown]
